FAERS Safety Report 23124663 (Version 1)
Quarter: 2023Q4

REPORT INFORMATION
  Report Type: Spontaneous
  Country: US (occurrence: US)
  Receive Date: 20231030
  Receipt Date: 20231030
  Transmission Date: 20240110
  Serious: No
  Sender: FDA-Public Use
  Company Number: US-OPELLA-2023OHG010057

PATIENT
  Sex: Female

DRUGS (1)
  1. GOLD BOND MEDICATED MAXIMUM STRENGTH FOOT [Suspect]
     Active Substance: MENTHOL
     Indication: Osteoarthritis

REACTIONS (2)
  - Incorrect product administration duration [Unknown]
  - No adverse event [Unknown]
